FAERS Safety Report 24443921 (Version 2)
Quarter: 2024Q4

REPORT INFORMATION
  Report Type: Report from Study
  Country: CA (occurrence: CA)
  Receive Date: 20241016
  Receipt Date: 20241017
  Transmission Date: 20250115
  Serious: No
  Sender: ROCHE
  Company Number: CA-ROCHE-2490802

PATIENT
  Age: 53 Year
  Sex: Female
  Weight: 74.8 kg

DRUGS (22)
  1. RITUXAN [Suspect]
     Active Substance: RITUXIMAB
     Indication: Rheumatoid arthritis
     Dosage: LAST INFUSION ON 25/MAY/2022
     Route: 042
     Dates: start: 20191106
  2. RITUXAN [Suspect]
     Active Substance: RITUXIMAB
     Route: 042
  3. RITUXAN [Suspect]
     Active Substance: RITUXIMAB
     Route: 042
  4. RITUXAN [Suspect]
     Active Substance: RITUXIMAB
     Route: 042
  5. RITUXAN [Suspect]
     Active Substance: RITUXIMAB
     Route: 042
  6. RITUXAN [Suspect]
     Active Substance: RITUXIMAB
     Route: 042
  7. RITUXAN [Suspect]
     Active Substance: RITUXIMAB
     Route: 042
  8. RITUXAN [Suspect]
     Active Substance: RITUXIMAB
     Route: 042
  9. RITUXAN [Suspect]
     Active Substance: RITUXIMAB
     Route: 042
  10. FOLIC ACID [Concomitant]
     Active Substance: FOLIC ACID
  11. METHOTREXATE [Concomitant]
     Active Substance: METHOTREXATE
     Route: 058
  12. SULFASALAZINE [Concomitant]
     Active Substance: SULFASALAZINE
  13. BENADRYL [Concomitant]
     Active Substance: DIPHENHYDRAMINE HYDROCHLORIDE
     Indication: Premedication
     Route: 048
     Dates: start: 20191106
  14. PLAQUENIL [Concomitant]
     Active Substance: HYDROXYCHLOROQUINE SULFATE
  15. SOLU-MEDROL [Concomitant]
     Active Substance: METHYLPREDNISOLONE SODIUM SUCCINATE
     Indication: Premedication
     Route: 042
     Dates: start: 20191106
  16. TYLENOL [Concomitant]
     Active Substance: ACETAMINOPHEN
     Indication: Premedication
     Route: 048
     Dates: start: 20191106
  17. TYLENOL [Concomitant]
     Active Substance: ACETAMINOPHEN
     Route: 048
     Dates: start: 20240227
  18. AMOXICILLIN [Concomitant]
     Active Substance: AMOXICILLIN
  19. HYDROXYCHLOROQUINE [Concomitant]
     Active Substance: HYDROXYCHLOROQUINE
  20. ASPIRIN [Concomitant]
     Active Substance: ASPIRIN
  21. HYDROMORPHONE [Concomitant]
     Active Substance: HYDROMORPHONE
     Indication: Pain
  22. SENOKOT [Concomitant]
     Active Substance: SENNOSIDES

REACTIONS (7)
  - Blood pressure systolic increased [Unknown]
  - Heart rate decreased [Unknown]
  - Body temperature decreased [Unknown]
  - Blood pressure systolic abnormal [Unknown]
  - Blood pressure increased [Unknown]
  - Blood pressure diastolic decreased [Unknown]
  - Blood pressure diastolic abnormal [Unknown]

NARRATIVE: CASE EVENT DATE: 20191120
